FAERS Safety Report 13562350 (Version 1)
Quarter: 2017Q2

REPORT INFORMATION
  Report Type: Spontaneous
  Country: NO (occurrence: NO)
  Receive Date: 20170519
  Receipt Date: 20170519
  Transmission Date: 20170830
  Serious: Yes (Hospitalization, Other)
  Sender: FDA-Public Use
  Company Number: NO-BRISTOL-MYERS SQUIBB COMPANY-BMS-2017-043657

PATIENT
  Age: 41 Year
  Sex: Male

DRUGS (1)
  1. NIVOLUMAB [Suspect]
     Active Substance: NIVOLUMAB
     Indication: MALIGNANT MELANOMA
     Dosage: UNK
     Route: 065
     Dates: start: 201605

REACTIONS (5)
  - Diarrhoea [Unknown]
  - Tumour excision [Unknown]
  - Abdominal pain [Unknown]
  - Metastases to gastrointestinal tract [Unknown]
  - Nausea [Unknown]
